FAERS Safety Report 5477211-X (Version None)
Quarter: 2007Q4

REPORT INFORMATION
  Report Type: 
  Country: None (occurrence: None)
  Receive Date: 20071004
  Receipt Date: 20070927
  Transmission Date: 20080405
  Serious: Yes (Other)
  Sender: FDA-Public Use
  Company Number: B0489001A

PATIENT
  Sex: Female

DRUGS (1)
  1. ZYBAN [Suspect]
     Dosage: 150MG VARIABLE DOSE
     Route: 048

REACTIONS (4)
  - ASTHMA [None]
  - DYSPNOEA [None]
  - HEADACHE [None]
  - VOMITING [None]
